FAERS Safety Report 7443092-8 (Version None)
Quarter: 2011Q2

REPORT INFORMATION
  Report Type: 
  Country: None (occurrence: None)
  Receive Date: 20110428
  Receipt Date: 20110418
  Transmission Date: 20111010
  Serious: Yes (Death, Hospitalization)
  Sender: FDA-Public Use
  Company Number: DK-TEVA-277583ISR

PATIENT
  Age: 46 Year
  Sex: Female

DRUGS (2)
  1. ETOPOSIDE [Suspect]
     Indication: SMALL CELL LUNG CANCER STAGE UNSPECIFIED
  2. CARBOPLATIN [Suspect]
     Indication: SMALL CELL LUNG CANCER STAGE UNSPECIFIED
     Dosage: AUC 5

REACTIONS (7)
  - PSEUDOMEMBRANOUS COLITIS [None]
  - NEUTROPENIA [None]
  - SUPERIOR VENA CAVA SYNDROME [None]
  - GASTROINTESTINAL NECROSIS [None]
  - LEUKOPENIA [None]
  - ENTEROCOLITIS [None]
  - THROMBOCYTOPENIA [None]
